FAERS Safety Report 9329748 (Version 1)
Quarter: 2013Q2

REPORT INFORMATION
  Report Type: Spontaneous
  Country: US (occurrence: US)
  Receive Date: 20130604
  Receipt Date: 20130604
  Transmission Date: 20140414
  Serious: No
  Sender: FDA-Public Use
  Company Number: US-SANOFI-AVENTIS-2013SA035641

PATIENT
  Sex: Female

DRUGS (4)
  1. LANTUS SOLOSTAR [Suspect]
     Indication: BLOOD GLUCOSE INCREASED
  2. SOLOSTAR [Suspect]
     Indication: BLOOD GLUCOSE INCREASED
  3. LEVEMIR [Concomitant]
     Dosage: DOSE:5 UNIT(S)
     Dates: start: 2013
  4. STARLIX [Concomitant]
     Dosage: TAKES NATEGLINIDE (STARLIX) WITH MEALS

REACTIONS (3)
  - Pruritus [Recovered/Resolved]
  - Injection site erythema [Recovering/Resolving]
  - Injection site pruritus [Recovering/Resolving]
